FAERS Safety Report 6327232-X (Version None)
Quarter: 2009Q3

REPORT INFORMATION
  Report Type: 
  Country: None (occurrence: None)
  Receive Date: 20090825
  Receipt Date: 20090819
  Transmission Date: 20100115
  Serious: Yes (Hospitalization, Other)
  Sender: FDA-Public Use
  Company Number: US-ABBOTT-09P-163-0592359-00

PATIENT
  Sex: Female
  Weight: 70.9 kg

DRUGS (14)
  1. HUMIRA [Suspect]
     Indication: RHEUMATOID ARTHRITIS
     Route: 058
     Dates: start: 20090301, end: 20090801
  2. METHOTREXATE [Suspect]
     Indication: RHEUMATOID ARTHRITIS
     Route: 048
     Dates: end: 20090801
  3. VITAMIN D [Concomitant]
     Indication: VITAMIN D DEFICIENCY
     Route: 048
  4. CLONAZEPAM [Concomitant]
     Indication: ANXIETY
     Route: 048
  5. CLONAZEPAM [Concomitant]
     Indication: TREMOR
  6. PREMARIN [Concomitant]
     Indication: HORMONE REPLACEMENT THERAPY
     Dosage: UNKNOWN
     Route: 061
  7. FLONASE [Concomitant]
     Indication: HYPERSENSITIVITY
     Route: 045
  8. ADVAIR HFA [Concomitant]
     Indication: ASTHMA
     Dosage: 250/50 MG / DISCUS
     Route: 055
  9. AVAPRO [Concomitant]
     Indication: HYPERTENSION
     Route: 048
  10. MIRTAZAPINE [Concomitant]
     Indication: TREMOR
     Route: 048
  11. SINGULAIR [Concomitant]
     Indication: HYPERSENSITIVITY
     Route: 048
  12. OMEPRAZOLE [Concomitant]
     Indication: GASTROOESOPHAGEAL REFLUX DISEASE
     Route: 048
  13. ONDANSETRON [Concomitant]
     Indication: NAUSEA
     Route: 048
  14. DITROPAN XL [Concomitant]
     Indication: URINARY INCONTINENCE
     Route: 048

REACTIONS (9)
  - CHRONIC OBSTRUCTIVE PULMONARY DISEASE [None]
  - COUGH [None]
  - DYSPNOEA [None]
  - NAUSEA [None]
  - NON-SMALL CELL LUNG CANCER [None]
  - OBSTRUCTIVE AIRWAYS DISORDER [None]
  - PRODUCTIVE COUGH [None]
  - RESPIRATORY TRACT CONGESTION [None]
  - WHEEZING [None]
